FAERS Safety Report 7618144 (Version 4)
Quarter: 2013Q3

REPORT INFORMATION
  Report Type: Report from Study
  Country: JP (occurrence: JP)
  Receive Date: 20101005
  Receipt Date: 20130711
  Transmission Date: 20140515
  Serious: Yes (Death, Life-Threatening, Hospitalization, Other)
  Sender: FDA-Public Use
  Company Number: JP-BRISTOL-MYERS SQUIBB COMPANY-15314651

PATIENT
  Age: 63 Year
  Sex: Male
  Weight: 58 kg

DRUGS (10)
  1. SPRYCEL [Suspect]
     Indication: ACUTE LYMPHOCYTIC LEUKAEMIA
     Dosage: 70MG;20JUL09,3-9MAR10-70MG;100MG26JUL09,09OCT,10JAN-03FEB10,10MAR-16MAY10?10SEP-8OCT09-120MG
     Route: 048
     Dates: start: 20090716
  2. CYTARABINE [Suspect]
     Indication: ACUTE LYMPHOCYTIC LEUKAEMIA
     Dosage: 4700MG:ON 15FEB10?120MG:24APR10-26APR10?150MG:24MAY10-26MAY10
     Route: 042
     Dates: start: 20100215, end: 20100526
  3. METHOTREXATE [Suspect]
     Indication: ACUTE LYMPHOCYTIC LEUKAEMIA
     Route: 042
     Dates: start: 20100216
  4. OMEPRAL [Concomitant]
     Indication: PROPHYLAXIS
     Dosage: TABLET FORM
     Route: 048
     Dates: end: 20100618
  5. VFEND [Concomitant]
     Dosage: FORM: TAB?1 DF= 400-200MG/DAY
     Route: 048
     Dates: end: 20100618
  6. SALOBEL [Concomitant]
     Indication: PROPHYLAXIS
     Dosage: FORM: TAB
     Route: 048
     Dates: end: 20100618
  7. PREDONINE [Concomitant]
     Indication: ACUTE LYMPHOCYTIC LEUKAEMIA RECURRENT
     Dosage: TABS;7.5MG28AUG-02SEP09,5MG03SEP-16SEP09,2.5MG17SEP-23SEP09,40MG30MARTO20APR10
     Route: 048
     Dates: start: 20090820, end: 20090827
  8. DECADRON [Concomitant]
     Indication: ACUTE LYMPHOCYTIC LEUKAEMIA RECURRENT
     Dosage: INJECTION
     Route: 042
     Dates: start: 20100123, end: 20100126
  9. METHYLPREDNISOLONE SODIUM SUCCINATE [Concomitant]
     Indication: ACUTE LYMPHOCYTIC LEUKAEMIA RECURRENT
     Dosage: INJECTION
     Route: 042
     Dates: start: 20100215, end: 20100216
  10. URSO [Concomitant]
     Indication: PRE-EXISTING DISEASE
     Dosage: PRIOR TO DASATINIB;TABS
     Route: 048
     Dates: end: 20091203

REACTIONS (4)
  - Malignant neoplasm progression [Fatal]
  - Gastrointestinal perforation [Recovered/Resolved]
  - White blood cell count decreased [Recovered/Resolved]
  - Neutrophil count decreased [Recovered/Resolved]
